FAERS Safety Report 4567777-6 (Version None)
Quarter: 2005Q1

REPORT INFORMATION
  Report Type: 
  Country: None (occurrence: None)
  Receive Date: 20050127
  Receipt Date: 20050114
  Transmission Date: 20050727
  Serious: Yes (Life-Threatening)
  Sender: FDA-Public Use
  Company Number: 2004109160

PATIENT
  Age: 51 Year
  Sex: Male

DRUGS (5)
  1. CARDENALIN (DOXAZOSIN) [Suspect]
     Indication: SUICIDE ATTEMPT
     Dosage: 52 MG, ORAL
     Route: 048
     Dates: start: 20041204
  2. NIFEDIPINE [Suspect]
     Indication: SUICIDE ATTEMPT
     Dosage: 520 MG, ORAL
     Route: 048
     Dates: start: 20041204
  3. IMIDAPRIL HYDROCHLORIDE (IMIDAPRIL HYDROCHLORIDE) [Suspect]
     Indication: SUICIDE ATTEMPT
     Dosage: 170 MG, ORAL
     Route: 048
     Dates: start: 20041204
  4. ROXATIDINE ACETATE HCL [Suspect]
     Indication: SUICIDE ATTEMPT
     Dosage: 975 MG, ORAL
     Route: 048
     Dates: start: 20041204
  5. ALLOPURINOL [Suspect]
     Indication: ILL-DEFINED DISORDER
     Dosage: 1200 MG, ORAL
     Route: 048
     Dates: start: 20041204

REACTIONS (9)
  - ALCOHOL USE [None]
  - BLOOD PRESSURE SYSTOLIC INCREASED [None]
  - CONVULSION [None]
  - DEPRESSED LEVEL OF CONSCIOUSNESS [None]
  - HEART RATE INCREASED [None]
  - HYPOTENSION [None]
  - INTENTIONAL MISUSE [None]
  - SNORING [None]
  - SUICIDE ATTEMPT [None]
